FAERS Safety Report 11530959 (Version 1)
Quarter: 2015Q3

REPORT INFORMATION
  Report Type: Spontaneous
  Country: US (occurrence: US)
  Receive Date: 20150903
  Receipt Date: 20150903
  Transmission Date: 20151125
  Serious: No
  Sender: FDA-Public Use
  Company Number: US-ELI_LILLY_AND_COMPANY-US201307008082

PATIENT
  Sex: Female

DRUGS (3)
  1. CYMBALTA [Suspect]
     Active Substance: DULOXETINE HYDROCHLORIDE
     Indication: FIBROMYALGIA
     Dosage: 30 MG, QD
     Route: 065
  2. CYMBALTA [Suspect]
     Active Substance: DULOXETINE HYDROCHLORIDE
     Indication: DIABETIC NEUROPATHY
  3. CYMBALTA [Suspect]
     Active Substance: DULOXETINE HYDROCHLORIDE
     Indication: CARPAL TUNNEL SYNDROME

REACTIONS (7)
  - Suspected counterfeit product [Unknown]
  - Extra dose administered [Recovered/Resolved]
  - Neuralgia [Unknown]
  - Peripheral swelling [Recovered/Resolved]
  - Tinnitus [Unknown]
  - Pain [Unknown]
  - Abdominal distension [Recovered/Resolved]
